FAERS Safety Report 10789516 (Version 1)
Quarter: 2015Q1

REPORT INFORMATION
  Report Type: Spontaneous
  Country: US (occurrence: US)
  Receive Date: 20150212
  Receipt Date: 20150212
  Transmission Date: 20150721
  Serious: No
  Sender: FDA-Public Use
  Company Number: US-GLAXOSMITHKLINE-A1090851A

PATIENT

DRUGS (6)
  1. ADVAIR DISKUS [Suspect]
     Active Substance: FLUTICASONE PROPIONATE\SALMETEROL XINAFOATE
     Indication: CHRONIC OBSTRUCTIVE PULMONARY DISEASE
     Dosage: 500/50
     Route: 055
     Dates: start: 2004
  2. PROAIR HFA [Suspect]
     Active Substance: ALBUTEROL SULFATE
     Dates: start: 2004
  3. LISINOPRIL. [Concomitant]
     Active Substance: LISINOPRIL
  4. EMERGEN-C [Concomitant]
     Active Substance: VITAMINS
  5. BABY ASPIRIN [Concomitant]
     Active Substance: ASPIRIN
  6. VITAMIN D [Concomitant]
     Active Substance: CHOLECALCIFEROL

REACTIONS (2)
  - Dyspnoea [Unknown]
  - Therapeutic response decreased [Unknown]
